FAERS Safety Report 5202921-9 (Version None)
Quarter: 2006Q4

REPORT INFORMATION
  Report Type: 
  Country: None (occurrence: None)
  Receive Date: 20061016
  Receipt Date: 20060830
  Transmission Date: 20070319
  Serious: No
  Sender: FDA-Public Use
  Company Number: 2006SP003153

PATIENT
  Age: 82 Year
  Sex: Female
  Weight: 68.4932 kg

DRUGS (7)
  1. LUNESTA [Suspect]
     Indication: INSOMNIA
     Dosage: 2 MG; PRN; ORAL
     Route: 048
     Dates: start: 20060828
  2. EVISTA [Concomitant]
  3. ESTROGENS [Concomitant]
  4. GARLIC [Concomitant]
  5. VITAMIN CAP [Concomitant]
  6. ASPIRIN [Concomitant]
  7. LYSINE [Concomitant]

REACTIONS (2)
  - FEELING JITTERY [None]
  - NIGHTMARE [None]
